FAERS Safety Report 15050150 (Version 1)
Quarter: 2018Q2

REPORT INFORMATION
  Report Type: Spontaneous
  Country: US (occurrence: US)
  Receive Date: 20180622
  Receipt Date: 20180622
  Transmission Date: 20180711
  Serious: Yes (Other)
  Sender: FDA-Public Use
  Company Number: US-QILU PHARMACEUTICAL CO.LTD.-QLU-000531-2018

PATIENT
  Age: 58 Year
  Sex: Female

DRUGS (4)
  1. CEFEPIME HYDROCHLORIDE. [Suspect]
     Active Substance: CEFEPIME HYDROCHLORIDE
     Indication: PNEUMONIA
     Dosage: 2 G, QD (EVERY 24 HOURS)
     Route: 065
  2. CEFEPIME HYDROCHLORIDE. [Suspect]
     Active Substance: CEFEPIME HYDROCHLORIDE
     Indication: PYELONEPHRITIS
     Dosage: 2 G, BID (EVERY 12 HOURS)
     Route: 065
  3. VANCOMYCIN [Concomitant]
     Active Substance: VANCOMYCIN
     Indication: PNEUMONIA
     Dosage: UNK
     Route: 065
  4. VANCOMYCIN [Concomitant]
     Active Substance: VANCOMYCIN
     Indication: PYELONEPHRITIS

REACTIONS (5)
  - Asterixis [Recovering/Resolving]
  - Confusional state [Recovering/Resolving]
  - Neurotoxicity [Recovering/Resolving]
  - Unresponsive to stimuli [Recovering/Resolving]
  - Myoclonus [Recovering/Resolving]
